FAERS Safety Report 23306684 (Version 1)
Quarter: 2023Q4

REPORT INFORMATION
  Report Type: Spontaneous
  Country: US (occurrence: US)
  Receive Date: 20231218
  Receipt Date: 20231218
  Transmission Date: 20240109
  Serious: No
  Sender: FDA-Public Use
  Company Number: US-RECKITT BENCKISER HEALTHCARE INT LIMITED-RB-089932-2023

PATIENT
  Age: 84 Year
  Sex: Female
  Weight: 72.73 kg

DRUGS (2)
  1. DELSYM COUGH PLUS SORE THROAT [Suspect]
     Active Substance: ACETAMINOPHEN\DEXTROMETHORPHAN HYDROBROMIDE
     Indication: Cough
     Dosage: UNKNOWN
     Route: 048
     Dates: start: 20230320
  2. DELSYM COUGH PLUS SORE THROAT [Suspect]
     Active Substance: ACETAMINOPHEN\DEXTROMETHORPHAN HYDROBROMIDE
     Indication: Oropharyngeal pain

REACTIONS (2)
  - COVID-19 [Not Recovered/Not Resolved]
  - Diarrhoea [Recovered/Resolved]

NARRATIVE: CASE EVENT DATE: 20230322
